FAERS Safety Report 6190132-2 (Version None)
Quarter: 2009Q2

REPORT INFORMATION
  Report Type: 
  Country: None (occurrence: None)
  Receive Date: 20090514
  Receipt Date: 20090507
  Transmission Date: 20091009
  Serious: Yes (Hospitalization)
  Sender: FDA-Public Use
  Company Number: US-JNJFOC-20090502250

PATIENT
  Sex: Female
  Weight: 123.83 kg

DRUGS (4)
  1. DURAGESIC-100 [Suspect]
     Indication: PAIN
     Route: 062
  2. FLEXERIL [Concomitant]
     Indication: MUSCLE RELAXANT THERAPY
     Route: 048
  3. AMBIEN CR [Concomitant]
     Indication: SLEEP DISORDER
     Route: 048
  4. WELLBUTRIN [Concomitant]
     Indication: DRUG USE FOR UNKNOWN INDICATION
     Route: 048

REACTIONS (4)
  - FIBROMYALGIA [None]
  - INCORRECT DRUG ADMINISTRATION DURATION [None]
  - INTERVERTEBRAL DISC DEGENERATION [None]
  - WRONG TECHNIQUE IN DRUG USAGE PROCESS [None]
